FAERS Safety Report 6838807-3 (Version None)
Quarter: 2010Q3

REPORT INFORMATION
  Report Type: 
  Country: None (occurrence: None)
  Receive Date: 20100713
  Receipt Date: 20070626
  Transmission Date: 20110219
  Serious: Yes (Other)
  Sender: FDA-Public Use
  Company Number: US-PFIZER INC-2007040800

PATIENT
  Sex: Male
  Weight: 79.4 kg

DRUGS (3)
  1. CHANTIX [Suspect]
     Indication: EX-TOBACCO USER
     Route: 048
     Dates: start: 20061101, end: 20061210
  2. WELLBUTRIN [Concomitant]
     Indication: DEPRESSION
  3. OTHER RESPIRATORY SYSTEM PRODUCTS [Concomitant]

REACTIONS (1)
  - PSYCHOTIC DISORDER [None]
